FAERS Safety Report 5694807-0 (Version None)
Quarter: 2008Q2

REPORT INFORMATION
  Report Type: 
  Country: None (occurrence: None)
  Receive Date: 20080404
  Receipt Date: 20080401
  Transmission Date: 20081010
  Serious: Yes (Hospitalization, Other)
  Sender: FDA-Public Use
  Company Number: US-MERCK-0708USA00295

PATIENT
  Age: 76 Year
  Sex: Female
  Weight: 79 kg

DRUGS (2)
  1. FOSAMAX [Suspect]
     Indication: OSTEOPOROSIS
     Route: 048
     Dates: start: 19960910, end: 20010301
  2. FOSAMAX [Suspect]
     Route: 048
     Dates: start: 20010301, end: 20050101

REACTIONS (24)
  - ACETABULUM FRACTURE [None]
  - ARTERIOSCLEROSIS [None]
  - ARTHROPATHY [None]
  - BACK INJURY [None]
  - CELLULITIS STAPHYLOCOCCAL [None]
  - CHRONIC OBSTRUCTIVE PULMONARY DISEASE [None]
  - DRUG HYPERSENSITIVITY [None]
  - FALL [None]
  - GASTROOESOPHAGEAL REFLUX DISEASE [None]
  - GINGIVAL RECESSION [None]
  - HALLUCINATION [None]
  - INSOMNIA [None]
  - MENTAL STATUS CHANGES [None]
  - MUSCLE ATROPHY [None]
  - NAUSEA [None]
  - NEUROPATHY PERIPHERAL [None]
  - OSTEOARTHRITIS [None]
  - OSTEONECROSIS [None]
  - PAIN IN EXTREMITY [None]
  - RESORPTION BONE INCREASED [None]
  - RIB FRACTURE [None]
  - SKIN LACERATION [None]
  - SPINAL COMPRESSION FRACTURE [None]
  - TONGUE ULCERATION [None]
